FAERS Safety Report 20607051 (Version 2)
Quarter: 2024Q4

REPORT INFORMATION
  Report Type: Spontaneous
  Country: IN (occurrence: IN)
  Receive Date: 20220317
  Receipt Date: 20241021
  Transmission Date: 20250115
  Serious: Yes (Death)
  Sender: PFIZER
  Company Number: IN-PFIZER INC-202200406511

PATIENT
  Age: 59 Year
  Sex: Male

DRUGS (1)
  1. CRIZOTINIB [Suspect]
     Active Substance: CRIZOTINIB
     Dosage: 250 MG BD
     Route: 048
     Dates: start: 20220117

REACTIONS (1)
  - Death [Fatal]

NARRATIVE: CASE EVENT DATE: 20220311
